FAERS Safety Report 4677182-X (Version None)
Quarter: 2005Q2

REPORT INFORMATION
  Report Type: 
  Country: None (occurrence: None)
  Receive Date: 20050526
  Receipt Date: 20050516
  Transmission Date: 20051028
  Serious: Yes (Hospitalization)
  Sender: FDA-Public Use
  Company Number: 2005076952

PATIENT
  Age: 65 Year
  Sex: Male
  Weight: 80 kg

DRUGS (2)
  1. SOLU-MEDROL (METHYLPRENISOLONE SODIUM SUCCINATE) [Suspect]
     Indication: MULTIPLE SCLEROSIS
     Dosage: 500 MG (1 IN 1 D), INTRAVENOUS
     Route: 042
     Dates: start: 20050318, end: 20050320
  2. IMUREL (AZATHIOPRINE) [Suspect]
     Indication: MULTIPLE SCLEROSIS
     Dosage: 100 MG (1 IN 1 D), ORAL
     Route: 048
     Dates: start: 20050318

REACTIONS (7)
  - BACK PAIN [None]
  - ESCHERICHIA INFECTION [None]
  - LUNG DISORDER [None]
  - PYELONEPHRITIS [None]
  - PYREXIA [None]
  - RASH MACULAR [None]
  - SEPTIC SHOCK [None]
